FAERS Safety Report 7783276-2 (Version None)
Quarter: 2011Q3

REPORT INFORMATION
  Report Type: 
  Country: None (occurrence: None)
  Receive Date: 20110928
  Receipt Date: 20110920
  Transmission Date: 20111222
  Serious: Yes (Other)
  Sender: FDA-Public Use
  Company Number: US-JNJFOC-20110908546

PATIENT
  Age: 78 Year
  Sex: Male

DRUGS (4)
  1. IMODIUM MULTI-SYMPTOM RELIEF [Suspect]
     Indication: DIARRHOEA
     Route: 048
     Dates: end: 20110918
  2. IMODIUM A-D [Suspect]
     Indication: DIARRHOEA
     Route: 048
     Dates: end: 20110918
  3. IMODIUM A-D [Suspect]
     Route: 048
  4. IMODIUM MULTI-SYMPTOM RELIEF [Suspect]
     Route: 048

REACTIONS (2)
  - HAEMATOCHEZIA [None]
  - FAECES DISCOLOURED [None]
